FAERS Safety Report 4774586-1 (Version None)
Quarter: 2005Q3

REPORT INFORMATION
  Report Type: 
  Country: None (occurrence: None)
  Receive Date: 20050914
  Receipt Date: 20041025
  Transmission Date: 20060218
  Serious: Yes (Hospitalization)
  Sender: FDA-Public Use
  Company Number: 163-20785-04100736

PATIENT
  Age: 59 Year
  Sex: Male

DRUGS (7)
  1. THALOMID [Suspect]
     Indication: MULTIPLE MYELOMA
     Dosage: 200 MG, QD, ORAL
     Route: 048
     Dates: start: 20040724, end: 20040729
  2. MELPHALAN (MELPHALAN) (SOLUTION) [Suspect]
     Indication: MULTIPLE MYELOMA
     Dosage: 400 MG, 1 DAY, INTRAVENOUS
     Route: 042
     Dates: start: 20040831
  3. DEXAMETHASONE [Suspect]
     Indication: MULTIPLE MYELOMA
     Dosage: 40 MG, DAYS 1-4, PER ORAL
     Route: 048
     Dates: start: 20040828, end: 20040831
  4. CISPLATIN [Concomitant]
  5. ADRIAMYCIN (DOXORUBICINE) (DOXORUBICIN) [Concomitant]
  6. CYCLOPHOSPHAMIDE [Concomitant]
  7. ETOPOSIDE [Concomitant]

REACTIONS (7)
  - ANAEMIA [None]
  - DIARRHOEA [None]
  - LUNG INFILTRATION [None]
  - PNEUMONIA [None]
  - PULMONARY EMBOLISM [None]
  - PYREXIA [None]
  - THROMBOCYTOPENIA [None]
